FAERS Safety Report 4281862-8 (Version None)
Quarter: 2004Q1

REPORT INFORMATION
  Report Type: 
  Country: None (occurrence: None)
  Receive Date: 20040108
  Receipt Date: 20021119
  Transmission Date: 20041129
  Serious: Yes (Hospitalization, Other)
  Sender: FDA-Public Use
  Company Number: HQ4932630OCT2002

PATIENT
  Age: 72 Year
  Sex: Female
  Weight: 102.15 kg

DRUGS (3)
  1. PREMPRO [Suspect]
     Indication: MENOPAUSAL SYMPTOMS
     Dosage: 1 TABLET 5 OF 7 DAYS WEEKLY; 0.625MG/2.5 MG,
     Dates: start: 20020409, end: 20020829
  2. TENORMIN [Concomitant]
  3. SYNTHROID [Concomitant]

REACTIONS (2)
  - PAIN IN EXTREMITY [None]
  - PULMONARY EMBOLISM [None]
